FAERS Safety Report 23553831 (Version 9)
Quarter: 2025Q2

REPORT INFORMATION
  Report Type: Spontaneous
  Country: US (occurrence: None)
  Receive Date: 20240222
  Receipt Date: 20250505
  Transmission Date: 20250717
  Serious: Yes (Hospitalization, Other)
  Sender: INCYTE
  Company Number: US-INCYTE CORPORATION-2024IN001744

PATIENT
  Age: 73 Year
  Weight: 70.59 kg

DRUGS (6)
  1. JAKAFI [Suspect]
     Active Substance: RUXOLITINIB
     Indication: Polycythaemia vera
     Dosage: 5 MILLIGRAM, BID
  2. JAKAFI [Suspect]
     Active Substance: RUXOLITINIB
     Dosage: 5 MILLIGRAM, BID
  3. JAKAFI [Suspect]
     Active Substance: RUXOLITINIB
     Dosage: 5 MILLIGRAM, BID
  4. JAKAFI [Suspect]
     Active Substance: RUXOLITINIB
     Dosage: 5 MILLIGRAM, BID
  5. JAKAFI [Suspect]
     Active Substance: RUXOLITINIB
     Dosage: 5 MILLIGRAM, BID
  6. JAKAFI [Suspect]
     Active Substance: RUXOLITINIB
     Dosage: 5 MILLIGRAM, BID

REACTIONS (15)
  - Coronary vein stenosis [Unknown]
  - Cerebrovascular accident [Unknown]
  - Sepsis [Unknown]
  - Cardiac failure [Unknown]
  - Cardiac disorder [Unknown]
  - Amnesia [Unknown]
  - Blood disorder [Unknown]
  - Oedema peripheral [Unknown]
  - Blood uric acid increased [Unknown]
  - Wound [Unknown]
  - Impaired healing [Unknown]
  - Weight decreased [Unknown]
  - Infection [Unknown]
  - Fall [Unknown]
  - Platelet count decreased [Unknown]
